FAERS Safety Report 10889206 (Version 1)
Quarter: 2015Q1

REPORT INFORMATION
  Report Type: Spontaneous
  Country: FR (occurrence: FR)
  Receive Date: 20150305
  Receipt Date: 20150305
  Transmission Date: 20150721
  Serious: Yes (Other)
  Sender: FDA-Public Use
  Company Number: FR-PFIZER INC-2015075645

PATIENT
  Age: 66 Year
  Sex: Male

DRUGS (4)
  1. APROVEL [Suspect]
     Active Substance: IRBESARTAN
     Dosage: 150 MG, 2X/DAY
     Route: 048
     Dates: start: 2013
  2. TRIATEC [Suspect]
     Active Substance: RAMIPRIL
     Dosage: 1 DF, DAILY (TAKEN IN MORNING)
     Route: 048
  3. KARDEGIC [Suspect]
     Active Substance: ASPIRIN LYSINE
     Dosage: 75 MG, DAILY (TAKEN IN MORNING)
     Route: 048
  4. TEMERIT [Suspect]
     Active Substance: NEBIVOLOL
     Dosage: 1 DF, DAILY (TAKEN IN MORNING)
     Route: 048

REACTIONS (2)
  - Eye haemorrhage [Not Recovered/Not Resolved]
  - Swelling face [Not Recovered/Not Resolved]

NARRATIVE: CASE EVENT DATE: 201501
